FAERS Safety Report 16766407 (Version 1)
Quarter: 2019Q3

REPORT INFORMATION
  Report Type: Spontaneous
  Country: US (occurrence: US)
  Receive Date: 20190714
  Receipt Date: 20190714
  Transmission Date: 20191005
  Serious: No
  Sender: FDA-Public Use
  Company Number: None

PATIENT
  Age: 67 Year
  Sex: Female

DRUGS (1)
  1. LEDIP/SOFOSB TAB  90-400MG (2X14) [Suspect]
     Active Substance: LEDIPASVIR\SOFOSBUVIR
     Route: 048
     Dates: start: 201906

REACTIONS (2)
  - Dyspepsia [None]
  - Abdominal pain upper [None]

NARRATIVE: CASE EVENT DATE: 20190714
